FAERS Safety Report 7950001-1 (Version None)
Quarter: 2011Q4

REPORT INFORMATION
  Report Type: 
  Country: None (occurrence: None)
  Receive Date: 20111130
  Receipt Date: 20111124
  Transmission Date: 20120403
  Serious: Yes (Life-Threatening, Hospitalization, Other)
  Sender: FDA-Public Use
  Company Number: JP-BRISTOL-MYERS SQUIBB COMPANY-16252652

PATIENT
  Age: 52 Year
  Sex: Male

DRUGS (11)
  1. LASIX [Concomitant]
     Route: 048
     Dates: start: 20110302
  2. TORSEMIDE [Concomitant]
     Route: 048
     Dates: end: 20110301
  3. FAMOTIDINE [Concomitant]
     Route: 048
  4. ZOSYN [Concomitant]
     Route: 042
     Dates: start: 20110308, end: 20110314
  5. BACTRIM [Concomitant]
     Dosage: 1DF: 6A/DAY
     Route: 042
     Dates: start: 20110317, end: 20110324
  6. SPRYCEL [Suspect]
     Indication: CHRONIC MYELOID LEUKAEMIA
     Dosage: FRM UNK DATE-22FEB11:70MG FRM 23FEB-19MAR11:140MG.
     Route: 048
     Dates: start: 20090914, end: 20110319
  7. MAXIPIME [Concomitant]
     Route: 042
     Dates: start: 20110305, end: 20110307
  8. ALLOPURINOL [Concomitant]
     Route: 048
  9. VFEND [Concomitant]
     Route: 048
     Dates: start: 20110317, end: 20110321
  10. FUNGUARD [Concomitant]
     Route: 042
     Dates: start: 20110311, end: 20110328
  11. MEROPENEM [Concomitant]
     Route: 042
     Dates: start: 20110314, end: 20110328

REACTIONS (4)
  - PLEURAL EFFUSION [None]
  - PYREXIA [None]
  - PLATELET COUNT DECREASED [None]
  - ANAEMIA [None]
